FAERS Safety Report 6399162-9 (Version None)
Quarter: 2009Q4

REPORT INFORMATION
  Report Type: 
  Country: None (occurrence: None)
  Receive Date: 20091008
  Receipt Date: 20090928
  Transmission Date: 20100525
  Serious: Yes (Hospitalization, Disabling)
  Sender: FDA-Public Use
  Company Number: OSCN-NO-0909S-0419

PATIENT
  Age: 62 Year
  Sex: Male

DRUGS (2)
  1. OMNISCAN [Suspect]
     Indication: VASCULAR GRAFT
     Dosage: 20 ML, SINGLE DOSE, I.V.
     Route: 042
     Dates: start: 20060405, end: 20060405
  2. MAGNEVIST [Concomitant]

REACTIONS (3)
  - ABASIA [None]
  - NEPHROGENIC SYSTEMIC FIBROSIS [None]
  - VASCULAR GRAFT [None]
